FAERS Safety Report 4530135-4 (Version None)
Quarter: 2004Q4

REPORT INFORMATION
  Report Type: 
  Country: None (occurrence: None)
  Receive Date: 20041217
  Receipt Date: 20041207
  Transmission Date: 20050328
  Serious: Yes (Hospitalization)
  Sender: FDA-Public Use
  Company Number: JP-JNJFOC-20041100348

PATIENT
  Sex: Male

DRUGS (3)
  1. ITRIZOLE [Suspect]
     Indication: ONYCHOMYCOSIS
     Route: 049
     Dates: start: 20041009, end: 20041015
  2. TEPRENONE [Concomitant]
     Indication: GASTROINTESTINAL DISORDER
     Route: 049
     Dates: start: 20041009, end: 20041015
  3. LANOCONAZOLE [Concomitant]
     Indication: TINEA PEDIS
     Route: 062

REACTIONS (4)
  - HYPOTENSION [None]
  - NASOPHARYNGITIS [None]
  - OCULOMUCOCUTANEOUS SYNDROME [None]
  - STEVENS-JOHNSON SYNDROME [None]
